FAERS Safety Report 10904509 (Version 1)
Quarter: 2015Q1

REPORT INFORMATION
  Report Type: Spontaneous
  Country: US (occurrence: None)
  Receive Date: 20150304
  Receipt Date: 20150304
  Transmission Date: 20150721
  Serious: No
  Sender: FDA-Public Use
  Company Number: None

PATIENT
  Age: 65 Year
  Sex: Female

DRUGS (7)
  1. LYRICA [Suspect]
     Active Substance: PREGABALIN
     Indication: SPINAL PAIN
     Dosage: 150 (3 50 MG), VARIED VARIED PER DOSE TAKEN BY MOUTH
     Route: 048
     Dates: start: 20120901, end: 20150303
  2. VITAMIN B12 [Concomitant]
     Active Substance: CYANOCOBALAMIN
  3. LYRICA [Suspect]
     Active Substance: PREGABALIN
     Indication: NECK PAIN
     Dosage: 150 (3 50 MG), VARIED VARIED PER DOSE TAKEN BY MOUTH
     Route: 048
     Dates: start: 20120901, end: 20150303
  4. CALCIUM [Concomitant]
     Active Substance: CALCIUM
  5. LYRICA [Suspect]
     Active Substance: PREGABALIN
     Indication: SPINAL CORD INJURY
     Dosage: 150 (3 50 MG), VARIED VARIED PER DOSE TAKEN BY MOUTH
     Route: 048
     Dates: start: 20120901, end: 20150303
  6. METOPROLOL [Concomitant]
     Active Substance: METOPROLOL
  7. D-3 [Concomitant]
     Active Substance: CHOLECALCIFEROL

REACTIONS (10)
  - Anxiety [None]
  - Anger [None]
  - Agitation [None]
  - Panic attack [None]
  - Logorrhoea [None]
  - Insomnia [None]
  - Herpes zoster [None]
  - Restlessness [None]
  - Irritability [None]
  - Quality of life decreased [None]

NARRATIVE: CASE EVENT DATE: 20121201
